FAERS Safety Report 7451401-9 (Version None)
Quarter: 2011Q2

REPORT INFORMATION
  Report Type: 
  Country: None (occurrence: None)
  Receive Date: 20110502
  Receipt Date: 20110427
  Transmission Date: 20111010
  Serious: Yes (Other)
  Sender: FDA-Public Use
  Company Number: FR-PFIZER INC-FRWYE427115FEB05

PATIENT
  Age: 41 Year
  Sex: Female

DRUGS (11)
  1. RAPAMUNE [Suspect]
     Indication: PROPHYLAXIS AGAINST TRANSPLANT REJECTION
     Dosage: UNK
     Route: 048
     Dates: start: 20040820, end: 20041027
  2. THYMOGLOBULIN [Concomitant]
     Dosage: 75 MG, (INJECTION)
     Dates: start: 20040822
  3. THYMOGLOBULIN [Concomitant]
     Dosage: 75 MG, (INJECTION)
     Dates: start: 20040819
  4. SOLU-MEDROL [Concomitant]
     Dosage: 500 MG, UNK
     Dates: start: 20040819
  5. PREDNISONE [Concomitant]
     Dosage: 1 MG/KG, 1X/DAY
     Dates: start: 20040820, end: 20040822
  6. THYMOGLOBULIN [Concomitant]
     Dosage: 75 MG, (INJECTION)
     Dates: start: 20040826
  7. CELLCEPT [Concomitant]
     Dosage: 2 G, UNK
     Dates: start: 20040820
  8. PREDNISONE [Concomitant]
     Dosage: 0.5 MG/KG, 1X/DAY
     Dates: start: 20040822, end: 20040824
  9. PREDNISONE [Concomitant]
     Dosage: 10 MG, 1X/DAY
  10. PREDNISONE [Concomitant]
     Dosage: 5 MG, UNK
  11. THYMOGLOBULIN [Concomitant]
     Dosage: 75 MG, (INJECTION)
     Dates: start: 20040824

REACTIONS (2)
  - PANCREAS TRANSPLANT REJECTION [None]
  - PROTEINURIA [None]
